FAERS Safety Report 9786478 (Version 1)
Quarter: 2013Q4

REPORT INFORMATION
  Report Type: Spontaneous
  Country: GB (occurrence: GB)
  Receive Date: 20131227
  Receipt Date: 20131227
  Transmission Date: 20140711
  Serious: Yes (Life-Threatening)
  Sender: FDA-Public Use
  Company Number: GB-BAYER-2013-155098

PATIENT
  Age: 32 Year
  Sex: Female
  Weight: 53 kg

DRUGS (1)
  1. ACETYLSALICYLIC ACID (} 100 MG) [Suspect]
     Indication: ANTIPLATELET THERAPY
     Dosage: UNK
     Dates: start: 20131209

REACTIONS (3)
  - Head discomfort [Unknown]
  - Swollen tongue [Recovered/Resolved]
  - Throat tightness [Unknown]
